FAERS Safety Report 4947961-X (Version None)
Quarter: 2006Q1

REPORT INFORMATION
  Report Type: 
  Country: None (occurrence: None)
  Receive Date: 20060320
  Receipt Date: 20050301
  Transmission Date: 20060701
  Serious: Yes (Other)
  Sender: FDA-Public Use
  Company Number: US-MERCK-0503USA00381

PATIENT
  Age: 57 Year
  Sex: Male
  Weight: 127 kg

DRUGS (13)
  1. VIOXX [Suspect]
     Indication: PAIN
     Route: 048
     Dates: start: 20000101, end: 20040811
  2. VIOXX [Suspect]
     Route: 048
     Dates: start: 20030201, end: 20040811
  3. VIOXX [Suspect]
     Route: 048
     Dates: start: 20030201, end: 20040811
  4. VIOXX [Suspect]
     Indication: ARTHRITIS
     Route: 048
     Dates: start: 20000101, end: 20040811
  5. VIOXX [Suspect]
     Route: 048
     Dates: start: 20030201, end: 20040811
  6. VIOXX [Suspect]
     Route: 048
     Dates: start: 20030201, end: 20040811
  7. PRILOSEC [Concomitant]
     Route: 065
  8. ISORDIL [Concomitant]
     Route: 065
  9. VICODIN [Concomitant]
     Route: 065
  10. CLONAZEPAM [Concomitant]
     Route: 065
  11. GLUCOPHAGE [Concomitant]
     Route: 065
  12. INSULIN [Concomitant]
     Route: 065
  13. ASCORBIC ACID [Concomitant]
     Route: 065

REACTIONS (25)
  - ANAEMIA [None]
  - ANGINA PECTORIS [None]
  - ANGINA UNSTABLE [None]
  - CARDIAC FAILURE CONGESTIVE [None]
  - CEREBROVASCULAR ACCIDENT [None]
  - CORONARY ARTERY DISEASE [None]
  - DYSPNOEA [None]
  - DYSPNOEA PAROXYSMAL NOCTURNAL [None]
  - FATIGUE [None]
  - GASTROOESOPHAGEAL REFLUX DISEASE [None]
  - HEPATOCELLULAR DAMAGE [None]
  - HYPERLIPIDAEMIA [None]
  - HYPERTENSION [None]
  - HYPOTENSION [None]
  - MYOCARDIAL INFARCTION [None]
  - ORTHOPNOEA [None]
  - OVERDOSE [None]
  - PALPITATIONS [None]
  - RENAL IMPAIRMENT [None]
  - ROTATOR CUFF SYNDROME [None]
  - SHOULDER PAIN [None]
  - SLEEP APNOEA SYNDROME [None]
  - THROMBOSIS [None]
  - TRIGGER FINGER [None]
  - ULCER [None]
